FAERS Safety Report 8974946 (Version 2)
Quarter: 2012Q4

REPORT INFORMATION
  Report Type: Report from Study
  Country: US (occurrence: US)
  Receive Date: 20121220
  Receipt Date: 20121222
  Transmission Date: 20130627
  Serious: Yes (Other)
  Sender: FDA-Public Use
  Company Number: US-ABBOTT-12P-163-1020892-00

PATIENT
  Sex: Female

DRUGS (2)
  1. HUMIRA [Suspect]
     Indication: RHEUMATOID ARTHRITIS
     Dates: start: 200512, end: 200912
  2. HUMIRA [Suspect]
     Dates: start: 2012

REACTIONS (2)
  - Benign breast neoplasm [Recovered/Resolved]
  - Rheumatoid arthritis [Recovered/Resolved]
